FAERS Safety Report 17278807 (Version 1)
Quarter: 2020Q1

REPORT INFORMATION
  Report Type: Spontaneous
  Country: NL (occurrence: NL)
  Receive Date: 20200116
  Receipt Date: 20200116
  Transmission Date: 20200409
  Serious: Yes (Hospitalization)
  Sender: FDA-Public Use
  Company Number: NVSC2020NL009339

PATIENT
  Sex: Female

DRUGS (2)
  1. DIOVAN [Suspect]
     Active Substance: VALSARTAN
     Dosage: 320 MG
     Route: 065
  2. DIOVAN [Suspect]
     Active Substance: VALSARTAN
     Indication: PRODUCT USED FOR UNKNOWN INDICATION
     Dosage: 160 MG
     Route: 065

REACTIONS (2)
  - Dizziness [Unknown]
  - Hypertension [Unknown]
